FAERS Safety Report 20055106 (Version 1)
Quarter: 2021Q4

REPORT INFORMATION
  Report Type: Spontaneous
  Country: US (occurrence: None)
  Receive Date: 20211110
  Receipt Date: 20211110
  Transmission Date: 20220303
  Serious: No
  Sender: FDA-Public Use
  Company Number: None

PATIENT
  Age: 72 Year
  Sex: Female
  Weight: 87.75 kg

DRUGS (12)
  1. VERZENIO [Suspect]
     Active Substance: ABEMACICLIB
     Indication: Breast cancer
     Dosage: FREQUENCY : TWICE A DAY;?
     Route: 048
     Dates: start: 20210206, end: 20211110
  2. amlodipine-benezapril [Concomitant]
  3. ATENOLOL [Concomitant]
     Active Substance: ATENOLOL
  4. CLONAZEPAM [Concomitant]
     Active Substance: CLONAZEPAM
  5. LEVOTHYROXINE [Concomitant]
     Active Substance: LEVOTHYROXINE
  6. RABEPRAZOLE [Concomitant]
     Active Substance: RABEPRAZOLE
  7. TRAMADOL [Concomitant]
     Active Substance: TRAMADOL
  8. XGEVA [Concomitant]
     Active Substance: DENOSUMAB
  9. FULVESTRANT [Concomitant]
     Active Substance: FULVESTRANT
  10. TYLENOL [Concomitant]
     Active Substance: ACETAMINOPHEN
  11. MELATONIN [Concomitant]
     Active Substance: MELATONIN
  12. PROCHLORPERAZINE [Concomitant]
     Active Substance: PROCHLORPERAZINE

REACTIONS (2)
  - Therapy interrupted [None]
  - Renal impairment [None]

NARRATIVE: CASE EVENT DATE: 20211109
